FAERS Safety Report 7076974-X (Version None)
Quarter: 2010Q4

REPORT INFORMATION
  Report Type: 
  Country: None (occurrence: None)
  Receive Date: 20101022
  Receipt Date: 20101007
  Transmission Date: 20110411
  Serious: Yes (Other)
  Sender: FDA-Public Use
  Company Number: TPA2010A05286

PATIENT
  Sex: Female

DRUGS (3)
  1. PREVACID [Suspect]
     Indication: GASTROOESOPHAGEAL REFLUX DISEASE
     Dosage: 30 MG, INTERMITTENT USE; DOSED AT BEDTIME, PER ORAL
     Route: 048
     Dates: start: 20080101
  2. PREVPAC [Suspect]
     Indication: HELICOBACTER INFECTION
     Dosage: PER ORAL,  PER ORAL
     Route: 048
     Dates: start: 20080101
  3. PREVPAC [Suspect]
     Indication: HELICOBACTER INFECTION
     Dosage: PER ORAL,  PER ORAL
     Route: 048
     Dates: start: 20100101

REACTIONS (1)
  - EXTRANODAL MARGINAL ZONE B-CELL LYMPHOMA (MALT TYPE) [None]
